FAERS Safety Report 7839035-5 (Version None)
Quarter: 2011Q4

REPORT INFORMATION
  Report Type: 
  Country: None (occurrence: None)
  Receive Date: 20111024
  Receipt Date: 20111011
  Transmission Date: 20120403
  Serious: Yes (Other)
  Sender: FDA-Public Use
  Company Number: DE-MYLANLABS-2011S1021078

PATIENT
  Age: 43 Year
  Sex: Male

DRUGS (2)
  1. CLINDAMYCIN [Suspect]
     Indication: PERIODONTITIS
     Dosage: DAILY DOSE: 1200 MG MILLIGRAM(S) EVERY DAY
     Route: 048
  2. AMOXICILLIN [Suspect]
     Indication: PERIODONTITIS
     Dosage: DAILY DOSE: 1500 MG MILLIGRAM(S) EVERY DAY
     Route: 048

REACTIONS (2)
  - ERYTHEMA [None]
  - RASH MACULAR [None]
